FAERS Safety Report 11981323 (Version 1)
Quarter: 2016Q1

REPORT INFORMATION
  Report Type: Report from Study
  Country: US (occurrence: US)
  Receive Date: 20160130
  Receipt Date: 20160130
  Transmission Date: 20160526
  Serious: Yes (Other)
  Sender: FDA-Public Use
  Company Number: US-ABBVIE-16K-163-1545159-00

PATIENT
  Age: 48 Year
  Sex: Male
  Weight: 106.69 kg

DRUGS (7)
  1. METFORMIN [Suspect]
     Active Substance: METFORMIN HYDROCHLORIDE
     Indication: DIABETES MELLITUS
     Route: 065
  2. DIOVAN [Concomitant]
     Active Substance: VALSARTAN
     Indication: HYPERTENSION
  3. HUMIRA [Suspect]
     Active Substance: ADALIMUMAB
     Indication: PSORIASIS
     Route: 058
     Dates: start: 20070903
  4. CRESTOR [Concomitant]
     Active Substance: ROSUVASTATIN CALCIUM
     Indication: BLOOD CHOLESTEROL INCREASED
  5. OMEPRAZOLE. [Concomitant]
     Active Substance: OMEPRAZOLE
     Indication: GASTROOESOPHAGEAL REFLUX DISEASE
  6. ASPIRIN. [Concomitant]
     Active Substance: ASPIRIN
     Indication: PRODUCT USED FOR UNKNOWN INDICATION
  7. ENALAPRIL [Concomitant]
     Active Substance: ENALAPRIL
     Indication: HYPERTENSION

REACTIONS (8)
  - Physical assault [Recovered/Resolved]
  - Diabetes mellitus [Not Recovered/Not Resolved]
  - Blood glucose increased [Recovered/Resolved]
  - Glycosylated haemoglobin increased [Not Recovered/Not Resolved]
  - Blood creatinine increased [Recovered/Resolved]
  - Electrocardiogram abnormal [Not Recovered/Not Resolved]
  - Burning sensation [Recovered/Resolved]
  - Rotator cuff syndrome [Not Recovered/Not Resolved]

NARRATIVE: CASE EVENT DATE: 201212
